FAERS Safety Report 4654237-7 (Version None)
Quarter: 2005Q2

REPORT INFORMATION
  Report Type: 
  Country: None (occurrence: None)
  Receive Date: 20050504
  Receipt Date: 20050422
  Transmission Date: 20051028
  Serious: Yes (Hospitalization)
  Sender: FDA-Public Use
  Company Number: US-2005-002582

PATIENT
  Age: 74 Year
  Sex: Female
  Weight: 63.5 kg

DRUGS (4)
  1. BETASERON [Suspect]
     Indication: MULTIPLE SCLEROSIS
     Dosage: 4 MIU, EVERY 2D, SUBCUTANEOUS; 6 MIU, 1 DOSE, SUBCUTANEOUS; 4 MIU, 1 DOSE, SUBCUTANEOUS
     Route: 058
     Dates: start: 20050114, end: 20050217
  2. BETASERON [Suspect]
     Indication: MULTIPLE SCLEROSIS
     Dosage: 4 MIU, EVERY 2D, SUBCUTANEOUS; 6 MIU, 1 DOSE, SUBCUTANEOUS; 4 MIU, 1 DOSE, SUBCUTANEOUS
     Route: 058
     Dates: start: 20050217, end: 20050217
  3. BETASERON [Suspect]
     Indication: MULTIPLE SCLEROSIS
     Dosage: 4 MIU, EVERY 2D, SUBCUTANEOUS; 6 MIU, 1 DOSE, SUBCUTANEOUS; 4 MIU, 1 DOSE, SUBCUTANEOUS
     Route: 058
     Dates: start: 20050219, end: 20050219
  4. SECONAL [Concomitant]

REACTIONS (5)
  - ASTHENIA [None]
  - HYPOAESTHESIA [None]
  - INFLUENZA LIKE ILLNESS [None]
  - SENSORY LOSS [None]
  - TREMOR [None]
